FAERS Safety Report 9377454 (Version 4)
Quarter: 2013Q4

REPORT INFORMATION
  Report Type: Spontaneous
  Country: US (occurrence: US)
  Receive Date: 20130701
  Receipt Date: 20131126
  Transmission Date: 20140711
  Serious: Yes (Hospitalization, Disabling, Other)
  Sender: FDA-Public Use
  Company Number: US-MERCK-1306USA011320

PATIENT
  Sex: Female

DRUGS (4)
  1. FOSAMAX [Suspect]
     Indication: OSTEOPOROSIS
     Dosage: 70 MG, UNK
     Route: 048
     Dates: start: 200206, end: 2010
  2. ALENDRONATE SODIUM [Suspect]
     Indication: OSTEOPOROSIS
     Dosage: UNK
     Dates: start: 2010
  3. CALCIUM (UNSPECIFIED) (+) VITAMIN D (UNSPECIFIED) [Concomitant]
     Indication: PRODUCT USED FOR UNKNOWN INDICATION
     Dosage: 600 MG, UNK
     Dates: start: 1971
  4. ESTROGENS (UNSPECIFIED) [Concomitant]
     Indication: OSTEOPOROSIS
     Dosage: UNK
     Dates: end: 2002

REACTIONS (37)
  - Open reduction of fracture [Unknown]
  - Open reduction of fracture [Unknown]
  - Open reduction of fracture [Unknown]
  - Spinal fusion surgery [Unknown]
  - Spinal rod insertion [Unknown]
  - Internal fixation of fracture [Recovered/Resolved]
  - Spinal corpectomy [Unknown]
  - Mammoplasty [Unknown]
  - Bone graft [Unknown]
  - Low turnover osteopathy [Not Recovered/Not Resolved]
  - Femur fracture [Recovered/Resolved with Sequelae]
  - Femur fracture [Recovered/Resolved]
  - Foot fracture [Unknown]
  - Stress fracture [Unknown]
  - Fall [Unknown]
  - Spinal fracture [Unknown]
  - Adverse event [Unknown]
  - Foot fracture [Unknown]
  - Fracture nonunion [Unknown]
  - Fall [Unknown]
  - Spondylolisthesis [Unknown]
  - Intervertebral disc degeneration [Unknown]
  - Transplant [Unknown]
  - Oestrogen deficiency [Unknown]
  - Rosacea [Unknown]
  - Melanocytic naevus [Unknown]
  - Hyperlipidaemia [Unknown]
  - Hot flush [Unknown]
  - Chest discomfort [Unknown]
  - Renal cyst [Unknown]
  - Osteoarthritis [Unknown]
  - Bursitis [Not Recovered/Not Resolved]
  - Hypertension [Unknown]
  - Back pain [Not Recovered/Not Resolved]
  - Pain in extremity [Unknown]
  - Drug ineffective [Unknown]
  - Gastrooesophageal reflux disease [Unknown]
